FAERS Safety Report 11410889 (Version 1)
Quarter: 2015Q3

REPORT INFORMATION
  Report Type: Spontaneous
  Country: US (occurrence: US)
  Receive Date: 20150824
  Receipt Date: 20150824
  Transmission Date: 20151125
  Serious: No
  Sender: FDA-Public Use
  Company Number: US-TEVA-587919ACC

PATIENT
  Sex: Female
  Weight: 77.18 kg

DRUGS (2)
  1. MONO DOXYCYCLINE [Concomitant]
     Indication: ACNE
  2. TAKE ACTION [Suspect]
     Active Substance: LEVONORGESTREL
     Indication: POST COITAL CONTRACEPTION
     Dates: start: 20150531, end: 20150531

REACTIONS (3)
  - Breast tenderness [Recovered/Resolved]
  - Menstruation delayed [Not Recovered/Not Resolved]
  - Fatigue [Recovered/Resolved]

NARRATIVE: CASE EVENT DATE: 20150531
